FAERS Safety Report 22031060 (Version 1)
Quarter: 2023Q1

REPORT INFORMATION
  Report Type: Spontaneous
  Country: DE (occurrence: DE)
  Receive Date: 20230223
  Receipt Date: 20230223
  Transmission Date: 20230418
  Serious: Yes (Other)
  Sender: FDA-Public Use
  Company Number: DE-SUN PHARMACEUTICAL INDUSTRIES LTD-2023RR-379033

PATIENT
  Age: 51 Year
  Sex: Female

DRUGS (4)
  1. GEMCITABINE [Suspect]
     Active Substance: GEMCITABINE
     Indication: Metastases to heart
     Dosage: SIX CYCLES
     Route: 065
  2. CISPLATIN [Suspect]
     Active Substance: CISPLATIN
     Indication: Metastases to heart
     Dosage: SIX CYCLES
     Route: 065
  3. CISPLATIN [Suspect]
     Active Substance: CISPLATIN
     Dosage: ANOTHER TWO CYCLES
     Route: 065
  4. CARBOPLATIN [Suspect]
     Active Substance: CARBOPLATIN
     Indication: Metastases to heart
     Dosage: UNK
     Route: 065

REACTIONS (7)
  - Renal failure [Unknown]
  - Disease progression [Unknown]
  - Hypokalaemia [Unknown]
  - Hypercalcaemia [Unknown]
  - Haematuria [Unknown]
  - Pancytopenia [Unknown]
  - Thrombocytopenia [Unknown]
